FAERS Safety Report 5012311-X (Version None)
Quarter: 2006Q2

REPORT INFORMATION
  Report Type: 
  Country: None (occurrence: None)
  Receive Date: 20060525
  Receipt Date: 20060525
  Transmission Date: 20061013
  Serious: No
  Sender: FDA-Public Use
  Company Number: None

PATIENT
  Age: 64 Year
  Sex: Male
  Weight: 89.3586 kg

DRUGS (2)
  1. ALTACE [Suspect]
     Indication: CARDIAC FAILURE CONGESTIVE
     Dosage: ONE PO QD
     Route: 048
     Dates: start: 20011120
  2. ALTACE [Suspect]
     Indication: HYPERTENSION
     Dosage: ONE PO QD
     Route: 048
     Dates: start: 20011120

REACTIONS (1)
  - COUGH [None]
